FAERS Safety Report 23677936 (Version 1)
Quarter: 2024Q1

REPORT INFORMATION
  Report Type: Spontaneous
  Country: US (occurrence: US)
  Receive Date: 20240327
  Receipt Date: 20240327
  Transmission Date: 20240410
  Serious: Yes (Hospitalization, Other)
  Sender: FDA-Public Use
  Company Number: US-BAXTER-2024BAX015657

PATIENT
  Age: 8 Decade
  Sex: Female

DRUGS (4)
  1. CIPROFLOXACIN [Suspect]
     Active Substance: CIPROFLOXACIN
     Indication: Urinary tract infection
     Dosage: 3 DAY COURSE
     Route: 065
  2. NITROFURANTOIN [Suspect]
     Active Substance: NITROFURANTOIN
     Indication: Urinary tract infection
     Dosage: SUSPICION FOR UTI
     Route: 065
  3. PLATELETS [Concomitant]
     Active Substance: HUMAN PLATELET, ALLOGENIC
     Indication: Transfusion
     Dosage: TWO UNITS
     Route: 065
  4. HUMAN RED BLOOD CELL [Concomitant]
     Active Substance: HUMAN RED BLOOD CELL
     Indication: Transfusion
     Dosage: PACKED, ONE UNIT
     Route: 065

REACTIONS (8)
  - Aplastic anaemia [Recovering/Resolving]
  - Condition aggravated [Unknown]
  - Epistaxis [Unknown]
  - Asthenia [Unknown]
  - Dyspnoea [Unknown]
  - Contusion [Unknown]
  - Oral pain [Unknown]
  - Pancytopenia [Recovered/Resolved]
